FAERS Safety Report 9298197 (Version 2)
Quarter: 2013Q2

REPORT INFORMATION
  Report Type: Spontaneous
  Country: NZ (occurrence: NZ)
  Receive Date: 20130520
  Receipt Date: 20130610
  Transmission Date: 20140414
  Serious: Yes (Other)
  Sender: FDA-Public Use
  Company Number: NZ-ROCHE-1224651

PATIENT
  Age: 43 Year
  Sex: Female

DRUGS (7)
  1. PEGASYS [Suspect]
     Indication: HEPATITIS C
     Route: 065
     Dates: start: 201208
  2. PEGASYS [Suspect]
     Indication: HEPATITIS B
  3. RIBAVIRIN [Suspect]
     Indication: HEPATITIS C
     Route: 065
     Dates: start: 201208
  4. RIBAVIRIN [Suspect]
     Indication: HEPATITIS B
  5. OMEPRAZOLE [Concomitant]
  6. NADOLOL [Concomitant]
  7. SPIRONOLACTONE [Concomitant]

REACTIONS (1)
  - Splenomegaly [Unknown]
